FAERS Safety Report 8152815-4 (Version None)
Quarter: 2012Q1

REPORT INFORMATION
  Report Type: 
  Country: None (occurrence: None)
  Receive Date: 20120215
  Receipt Date: 20120131
  Transmission Date: 20120608
  Serious: Yes (Hospitalization)
  Sender: FDA-Public Use
  Company Number: UTC-014432

PATIENT
  Age: 48 Year
  Sex: Female
  Weight: 106 kg

DRUGS (7)
  1. LETAIRIS [Suspect]
     Indication: PRODUCT USED FOR UNKNOWN INDICATION
  2. TYVASO [Suspect]
     Indication: PULMONARY ARTERIAL HYPERTENSION
     Dosage: 216 MCG (54 MCG, 4 IN 1 D), INHALATION
     Route: 055
     Dates: start: 20110729
  3. REVATIO [Concomitant]
  4. DIURETICS (DIURETICS) [Concomitant]
  5. OXYGEN (OXYGEN) [Suspect]
     Indication: PRODUCT USED FOR UNKNOWN INDICATION
  6. COUMADIN [Suspect]
     Indication: PRODUCT USED FOR UNKNOWN INDICATION
  7. TRACLEER [Concomitant]

REACTIONS (4)
  - EPISTAXIS [None]
  - SCAB [None]
  - NASAL DISCOMFORT [None]
  - PULMONARY HAEMORRHAGE [None]
